FAERS Safety Report 18995255 (Version 1)
Quarter: 2021Q1

REPORT INFORMATION
  Report Type: Spontaneous
  Country: US (occurrence: US)
  Receive Date: 20210310
  Receipt Date: 20210310
  Transmission Date: 20210420
  Serious: Yes (Other)
  Sender: FDA-Public Use
  Company Number: US-AMAG PHARMACEUTICALS, INC.-AMAG202100747

PATIENT
  Age: 66 Year
  Sex: Male

DRUGS (1)
  1. FERAHEME [Suspect]
     Active Substance: FERUMOXYTOL NON-STOICHIOMETRIC MAGNETITE
     Indication: PRODUCT USED FOR UNKNOWN INDICATION
     Dosage: PATIENT RECEIVED APPROXIMATELY 7ML OF FERAHEME
     Route: 042

REACTIONS (6)
  - Syncope [Recovered/Resolved]
  - Pallor [Recovered/Resolved]
  - Anxiety [Recovered/Resolved]
  - Pulse absent [Recovered/Resolved]
  - Bradycardia [Recovered/Resolved]
  - Hyperhidrosis [Recovered/Resolved]
